FAERS Safety Report 9775173 (Version 1)
Quarter: 2013Q4

REPORT INFORMATION
  Report Type: Spontaneous
  Country: None (occurrence: None)
  Receive Date: 20131219
  Receipt Date: 20131219
  Transmission Date: 20140711
  Serious: Yes (Other)
  Sender: FDA-Public Use
  Company Number: None

PATIENT
  Age: 41 Year
  Sex: Female
  Weight: 64.41 kg

DRUGS (2)
  1. DAWN CLASSIC [Suspect]
     Indication: INFECTION PROPHYLAXIS
     Dosage: DAILY HAND AND DISH WASHING 6-10 X A DAY, APPLIED TO A SURFACE, USUALLY THE SKIN?
     Route: 061
  2. DIAL [Suspect]
     Indication: INFECTION PROPHYLAXIS
     Dosage: 8 BARS PACK, TWICE DAILY, APPLIED TO A SURFACE, USUALLY THE SKIN
     Route: 061

REACTIONS (1)
  - Infertility [None]
